FAERS Safety Report 9344981 (Version 1)
Quarter: 2013Q2

REPORT INFORMATION
  Report Type: Spontaneous
  Country: US (occurrence: US)
  Receive Date: 20130612
  Receipt Date: 20130612
  Transmission Date: 20140414
  Serious: Yes (Hospitalization)
  Sender: FDA-Public Use
  Company Number: US-BRISTOL-MYERS SQUIBB COMPANY-18998120

PATIENT
  Age: 45 Year
  Sex: Male
  Weight: 101.58 kg

DRUGS (1)
  1. BYDUREON [Suspect]
     Indication: TYPE 2 DIABETES MELLITUS
     Dosage: DURATION OF THERAPY: ABOUT 3 AND A HALF MONTHS
     Dates: start: 20130521, end: 20130521

REACTIONS (2)
  - Pancreatitis [Unknown]
  - Blood glucose abnormal [Unknown]
